FAERS Safety Report 4973992-X (Version None)
Quarter: 2006Q2

REPORT INFORMATION
  Report Type: 
  Country: None (occurrence: None)
  Receive Date: 20060407
  Receipt Date: 20060324
  Transmission Date: 20061013
  Serious: Yes (Hospitalization, Other)
  Sender: FDA-Public Use
  Company Number: 2005BI017788

PATIENT
  Age: 68 Year
  Sex: Male
  Weight: 68.0396 kg

DRUGS (3)
  1. AVONEX [Suspect]
     Indication: MULTIPLE SCLEROSIS
     Dosage: 30 UG QW IM
     Route: 030
     Dates: start: 19970601, end: 20030801
  2. AVONEX [Suspect]
     Indication: MULTIPLE SCLEROSIS
     Dosage: 30 UG QW IM
     Route: 030
     Dates: start: 20030801
  3. DIGITEK [Concomitant]

REACTIONS (12)
  - ARRHYTHMIA [None]
  - AUTOMATIC BLADDER [None]
  - BACTERIAL SEPSIS [None]
  - BENIGN COLONIC NEOPLASM [None]
  - CARDIAC FAILURE CONGESTIVE [None]
  - CORONARY ARTERY OCCLUSION [None]
  - HEART RATE INCREASED [None]
  - POST PROCEDURAL COMPLICATION [None]
  - PRECANCEROUS CELLS PRESENT [None]
  - STRESS [None]
  - URINARY TRACT INFECTION [None]
  - WEIGHT DECREASED [None]
